FAERS Safety Report 13692812 (Version 2)
Quarter: 2017Q3

REPORT INFORMATION
  Report Type: Spontaneous
  Country: US (occurrence: US)
  Receive Date: 20170627
  Receipt Date: 20170713
  Transmission Date: 20171127
  Serious: Yes (Life-Threatening, Hospitalization, Other)
  Sender: FDA-Public Use
  Company Number: US-TORRENT-00003139

PATIENT
  Age: 17 Year
  Sex: Male

DRUGS (5)
  1. RISPERIDONE. [Suspect]
     Active Substance: RISPERIDONE
  2. QUETIAPINE FUMARATE. [Suspect]
     Active Substance: QUETIAPINE FUMARATE
  3. ARIPIPRAZOLE. [Suspect]
     Active Substance: ARIPIPRAZOLE
  4. OLANZAPINE. [Suspect]
     Active Substance: OLANZAPINE
  5. CHLORPROMAZINE. [Suspect]
     Active Substance: CHLORPROMAZINE

REACTIONS (3)
  - Drug ineffective [Unknown]
  - Neuroleptic malignant syndrome [Recovered/Resolved]
  - Catatonia [Recovered/Resolved]
